FAERS Safety Report 7808101-2 (Version None)
Quarter: 2011Q4

REPORT INFORMATION
  Report Type: 
  Country: None (occurrence: None)
  Receive Date: 20111011
  Receipt Date: 20110926
  Transmission Date: 20120403
  Serious: Yes (Hospitalization)
  Sender: FDA-Public Use
  Company Number: ES-ROCHE-1000319

PATIENT
  Age: 68 Year
  Sex: Female

DRUGS (6)
  1. CHLORTHALIDONE [Suspect]
     Indication: HYPERTENSION
     Route: 048
     Dates: start: 20110401, end: 20110418
  2. TRAMADOL HCL [Suspect]
     Indication: PAIN
     Route: 065
     Dates: start: 20110413, end: 20110418
  3. FUROSEMIDE [Suspect]
     Indication: CARDIAC FAILURE CONGESTIVE
     Route: 065
     Dates: start: 20110413, end: 20110418
  4. LISINOPRIL [Concomitant]
     Indication: HYPERTENSION
     Dates: start: 20110401
  5. XELODA [Suspect]
     Indication: GASTRIC CANCER
     Route: 065
     Dates: start: 20110401
  6. MORPHINE [Suspect]
     Indication: PAIN
     Route: 065
     Dates: start: 20110413, end: 20110418

REACTIONS (5)
  - MUSCULAR WEAKNESS [None]
  - CONFUSIONAL STATE [None]
  - LETHARGY [None]
  - HYPOKALAEMIA [None]
  - DELIRIUM [None]
